FAERS Safety Report 8906397 (Version 1)
Quarter: 2012Q4

REPORT INFORMATION
  Report Type: Spontaneous
  Country: US (occurrence: None)
  Receive Date: 20121109
  Receipt Date: 20121109
  Transmission Date: 20130627
  Serious: Yes (Disabling)
  Sender: FDA-Public Use
  Company Number: None

PATIENT
  Age: 75 Year
  Sex: Male
  Weight: 108.86 kg

DRUGS (1)
  1. CIPROFLOXACIN HCL [Suspect]
     Indication: FOOT INFECTION

REACTIONS (2)
  - Optic ischaemic neuropathy [None]
  - Blindness unilateral [None]
